FAERS Safety Report 18258420 (Version 1)
Quarter: 2020Q3

REPORT INFORMATION
  Report Type: Other
  Country: US (occurrence: US)
  Receive Date: 20200911
  Receipt Date: 20200911
  Transmission Date: 20201103
  Serious: No
  Sender: FDA-Public Use
  Company Number: US-LEADIANT BIOSCIENCES INC-2019STPI000582

PATIENT

DRUGS (1)
  1. MATULANE [Suspect]
     Active Substance: PROCARBAZINE HYDROCHLORIDE
     Indication: BRAIN NEOPLASM MALIGNANT
     Dosage: 50 MILLIGRAM THREE CAPS ON DAY 8 AND 2 CAPS ON DAYS 9?21
     Route: 048
     Dates: start: 20190603

REACTIONS (5)
  - Dyspnoea [Unknown]
  - Urticaria [Unknown]
  - Arthralgia [Unknown]
  - Drug hypersensitivity [Unknown]
  - Asthenia [Unknown]
